FAERS Safety Report 11093501 (Version 3)
Quarter: 2015Q2

REPORT INFORMATION
  Report Type: Report from Study
  Country: DE (occurrence: DE)
  Receive Date: 20150506
  Receipt Date: 20150527
  Transmission Date: 20150821
  Serious: Yes (Other)
  Sender: FDA-Public Use
  Company Number: PHHY2015DE050234

PATIENT
  Sex: Male

DRUGS (5)
  1. NEBIVOLOL ACTAVIS [Concomitant]
     Active Substance: NEBIVOLOL
     Indication: CORONARY ARTERY DISEASE
     Dosage: 5 MG, DAILY
     Route: 065
     Dates: start: 201303
  2. METFORMIN [Concomitant]
     Active Substance: METFORMIN HYDROCHLORIDE
     Indication: TYPE 2 DIABETES MELLITUS
     Dosage: 1200 MG, DAILY
     Route: 065
     Dates: start: 201303
  3. SIMVASTATIN. [Concomitant]
     Active Substance: SIMVASTATIN
     Indication: HYPERLIPIDAEMIA
     Dosage: 20 MG, DAILY
     Route: 065
     Dates: start: 20140926
  4. AMN107 [Suspect]
     Active Substance: NILOTINIB
     Indication: CHRONIC MYELOID LEUKAEMIA
     Dosage: 600 MG, QD (PER DAY)
     Route: 048
     Dates: start: 20130422
  5. BUDESONID EASYHALER [Concomitant]
     Active Substance: BUDESONIDE
     Indication: DYSPNOEA
     Dosage: 1 PUFF, DAILY
     Route: 065
     Dates: start: 20140926

REACTIONS (4)
  - Coronary artery disease [Not Recovered/Not Resolved]
  - Dyspnoea [Unknown]
  - Chest discomfort [Unknown]
  - Respiratory tract infection viral [Recovered/Resolved]

NARRATIVE: CASE EVENT DATE: 20150128
